FAERS Safety Report 5739037-9 (Version None)
Quarter: 2008Q2

REPORT INFORMATION
  Report Type: 
  Country: None (occurrence: None)
  Receive Date: 20080515
  Receipt Date: 20080515
  Transmission Date: 20081010
  Serious: Yes (Death)
  Sender: FDA-Public Use
  Company Number: None

PATIENT
  Age: 77 Year
  Sex: Male
  Weight: 45.3597 kg

DRUGS (2)
  1. HEPARIN [Suspect]
     Indication: MYOCARDIAL INFARCTION
     Dates: start: 20071130, end: 20071223
  2. HEPARIN [Suspect]
     Indication: THROMBOSIS PROPHYLAXIS
     Dates: start: 20071130, end: 20071223

REACTIONS (5)
  - BLOOD CULTURE POSITIVE [None]
  - CARDIAC ARREST [None]
  - HYPOTENSION [None]
  - INFECTION [None]
  - TACHYCARDIA [None]
